FAERS Safety Report 13659497 (Version 1)
Quarter: 2017Q2

REPORT INFORMATION
  Report Type: Report from Study
  Country: DE (occurrence: DE)
  Receive Date: 20170616
  Receipt Date: 20170616
  Transmission Date: 20170830
  Serious: Yes (Congenital Anomaly, Other)
  Sender: FDA-Public Use
  Company Number: DE-GLAXOSMITHKLINE-DE2017GSK092676

PATIENT

DRUGS (5)
  1. CEFUROXIME. [Suspect]
     Active Substance: CEFUROXIME
     Route: 064
  2. AMOXICILLIN. [Suspect]
     Active Substance: AMOXICILLIN
     Route: 064
  3. ENOXAPARIN [Suspect]
     Active Substance: ENOXAPARIN
     Route: 064
  4. NITROFURANTOIN. [Suspect]
     Active Substance: NITROFURANTOIN
     Route: 064
  5. PHENPROCOUMON [Suspect]
     Active Substance: PHENPROCOUMON
     Route: 064

REACTIONS (4)
  - Hydronephrosis [Unknown]
  - Kidney malformation [Unknown]
  - Pyloric stenosis [Unknown]
  - Foetal exposure during pregnancy [Unknown]
